FAERS Safety Report 22163927 (Version 5)
Quarter: 2023Q2

REPORT INFORMATION
  Report Type: Spontaneous
  Country: US (occurrence: US)
  Receive Date: 20230402
  Receipt Date: 20230513
  Transmission Date: 20230722
  Serious: No
  Sender: FDA-Public Use
  Company Number: US-JNJFOC-20230379099

PATIENT
  Age: 32 Year
  Sex: Female

DRUGS (1)
  1. TREMFYA [Suspect]
     Active Substance: GUSELKUMAB
     Indication: Psoriasis
     Route: 058
     Dates: start: 202210

REACTIONS (3)
  - Product dose omission issue [Unknown]
  - Complication associated with device [Unknown]
  - Device defective [Unknown]

NARRATIVE: CASE EVENT DATE: 20230328
